FAERS Safety Report 21784773 (Version 1)
Quarter: 2022Q4

REPORT INFORMATION
  Report Type: Spontaneous
  Country: CA (occurrence: CA)
  Receive Date: 20221227
  Receipt Date: 20221227
  Transmission Date: 20230113
  Serious: Yes (Hospitalization)
  Sender: FDA-Public Use
  Company Number: CA-009507513-2212CAN009466

PATIENT
  Age: 83 Year
  Sex: Female
  Weight: 67 kg

DRUGS (15)
  1. KEYTRUDA [Suspect]
     Active Substance: PEMBROLIZUMAB
     Indication: Lung adenocarcinoma stage IV
     Dosage: 140 MILLIGRAM, 1 EVERY 21 DAYS
     Route: 042
  2. ATOVAQUONE [Concomitant]
     Active Substance: ATOVAQUONE
     Route: 048
  3. CALCIUM CHLORIDE [Concomitant]
     Active Substance: CALCIUM CHLORIDE
     Route: 065
  4. LASIX [Concomitant]
     Active Substance: FUROSEMIDE
     Route: 065
  5. NORVASC [Concomitant]
     Active Substance: AMLODIPINE BESYLATE
     Route: 065
  6. ONGLYZA [SAXAGLIPTIN HYDROCHLORIDE] [Concomitant]
     Route: 065
  7. POTASSIUM [Concomitant]
     Active Substance: POTASSIUM
     Route: 065
  8. PREDNISONE [Concomitant]
     Active Substance: PREDNISONE
     Route: 065
  9. RANITIDINE [Concomitant]
     Active Substance: RANITIDINE
     Route: 065
  10. REPAGLINIDE [Concomitant]
     Active Substance: REPAGLINIDE
     Route: 065
  11. SOTALOL [Concomitant]
     Active Substance: SOTALOL
     Route: 065
  12. SPIRIVA [Concomitant]
     Active Substance: TIOTROPIUM BROMIDE MONOHYDRATE
     Route: 065
  13. SYNTHROID [Concomitant]
     Active Substance: LEVOTHYROXINE SODIUM
     Route: 065
  14. VENTOLIN [Concomitant]
     Active Substance: ALBUTEROL SULFATE
     Route: 065
  15. CHOLECALCIFEROL [Concomitant]
     Active Substance: CHOLECALCIFEROL
     Route: 065

REACTIONS (6)
  - Acute kidney injury [Unknown]
  - Arrhythmia [Unknown]
  - Autoimmune nephritis [Unknown]
  - Blood creatinine increased [Unknown]
  - Nephritis [Unknown]
  - Retroperitoneal haemorrhage [Unknown]
